FAERS Safety Report 5106290-4 (Version None)
Quarter: 2006Q3

REPORT INFORMATION
  Report Type: 
  Country: None (occurrence: None)
  Receive Date: 20060918
  Receipt Date: 20060905
  Transmission Date: 20061208
  Serious: Yes (Death, Hospitalization)
  Sender: FDA-Public Use
  Company Number: US-JNJFOC-20060902624

PATIENT
  Age: 13 Year
  Sex: Female

DRUGS (6)
  1. ACETAMINOPHEN [Suspect]
     Indication: PAIN
     Route: 048
  2. ACETAMINOPHEN [Suspect]
     Indication: UPPER RESPIRATORY TRACT INFECTION
     Dosage: UNKNOWN DOSE FOR 5 DAYS
     Route: 048
  3. ACETAMINOPHEN/PSEUDOEPHEDRINE [Suspect]
     Indication: PAIN
     Route: 048
  4. ACETAMINOPHEN/PSEUDOEPHEDRINE [Suspect]
     Indication: UPPER RESPIRATORY TRACT INFECTION
     Dosage: DOSE UNKNOWN, FOR 5 DAYS
     Route: 048
  5. MYCOPHENOLATE [Concomitant]
  6. TACROLIMUS [Concomitant]

REACTIONS (3)
  - ACCIDENTAL OVERDOSE [None]
  - HEPATIC FAILURE [None]
  - RENAL IMPAIRMENT [None]
